FAERS Safety Report 18579573 (Version 12)
Quarter: 2021Q1

REPORT INFORMATION
  Report Type: Spontaneous
  Country: GB (occurrence: GB)
  Receive Date: 20201204
  Receipt Date: 20210303
  Transmission Date: 20210419
  Serious: Yes (Other)
  Sender: FDA-Public Use
  Company Number: GB-ROCHE-2723918

PATIENT
  Age: 64 Year
  Sex: Female
  Weight: 58.35 kg

DRUGS (12)
  1. SODIUM CHLORIDE IV [Suspect]
     Active Substance: SODIUM CHLORIDE
     Indication: MEDICATION DILUTION
     Dosage: SOLUTION FOR INFUSION
     Route: 042
     Dates: start: 20201028
  2. PENTAMIDINE ISETIONATE [Suspect]
     Active Substance: PENTAMIDINE ISETHIONATE
     Indication: ANTIFUNGAL PROPHYLAXIS
     Route: 065
     Dates: start: 20201028
  3. PENTAMIDINE ISETIONATE [Suspect]
     Active Substance: PENTAMIDINE ISETHIONATE
     Indication: NEUTROPENIA
     Route: 065
     Dates: start: 20201028
  4. VALGANCICLOVIR. [Suspect]
     Active Substance: VALGANCICLOVIR
     Indication: CYTOMEGALOVIRUS CHORIORETINITIS
     Route: 048
     Dates: start: 20200916
  5. PENTAMIDINE [Suspect]
     Active Substance: PENTAMIDINE
     Indication: PROPHYLAXIS
     Route: 065
     Dates: start: 20201028
  6. PENTAMIDINE [Suspect]
     Active Substance: PENTAMIDINE
     Indication: ANTIFUNGAL PROPHYLAXIS
     Dosage: SOLUTION FOR INJECTION
     Route: 065
     Dates: start: 20201028
  7. ZARXIO [Suspect]
     Active Substance: FILGRASTIM-SNDZ
     Dosage: UNK
     Route: 065
  8. TOLVAPTAN [Suspect]
     Active Substance: TOLVAPTAN
     Indication: HYPONATRAEMIA
     Route: 048
     Dates: start: 20200218
  9. PENTAMIDINE [Suspect]
     Active Substance: PENTAMIDINE
     Indication: NEUTROPENIA
     Dosage: SOLUTION FOR INJECTION
     Route: 065
  10. ZARXIO [Suspect]
     Active Substance: FILGRASTIM-SNDZ
     Indication: NEUTROPENIA
     Route: 058
     Dates: start: 20201020
  11. PENTAMIDINE ISETIONATE [Suspect]
     Active Substance: PENTAMIDINE ISETHIONATE
     Route: 065
  12. SODIUM CHLORIDE IV [Suspect]
     Active Substance: SODIUM CHLORIDE
     Dosage: SOLUTION FOR INFUSION
     Route: 042

REACTIONS (3)
  - Pruritus [Recovered/Resolved]
  - Infusion site erythema [Recovered/Resolved]
  - Infusion site swelling [Recovered/Resolved]

NARRATIVE: CASE EVENT DATE: 20201028
